FAERS Safety Report 19946303 (Version 2)
Quarter: 2021Q4

REPORT INFORMATION
  Report Type: Spontaneous
  Country: DE (occurrence: DE)
  Receive Date: 20211012
  Receipt Date: 20211022
  Transmission Date: 20220303
  Serious: Yes (Other)
  Sender: FDA-Public Use
  Company Number: DE-ROCHE-2879532

PATIENT
  Age: 66 Year
  Sex: Female

DRUGS (7)
  1. CISPLATIN [Suspect]
     Active Substance: CISPLATIN
     Indication: Diffuse large B-cell lymphoma
  2. CYTARABINE [Suspect]
     Active Substance: CYTARABINE
     Indication: Diffuse large B-cell lymphoma
     Dosage: HIGH-DOSE CYTARABINE (2*1000 MG/M2)
  3. DEXAMETHASONE [Suspect]
     Active Substance: DEXAMETHASONE
     Indication: Diffuse large B-cell lymphoma
     Dosage: 40 MG, DAY 1-4
  4. RITUXIMAB [Suspect]
     Active Substance: RITUXIMAB
     Indication: Diffuse large B-cell lymphoma
  5. OXALIPLATIN [Concomitant]
     Active Substance: OXALIPLATIN
  6. ROMIPLOSTIM [Concomitant]
     Active Substance: ROMIPLOSTIM
  7. GEMCITABINE [Concomitant]
     Active Substance: GEMCITABINE

REACTIONS (4)
  - Drug intolerance [Unknown]
  - Drug effect less than expected [Unknown]
  - Renal impairment [Unknown]
  - Off label use [Unknown]
